FAERS Safety Report 25500592 (Version 4)
Quarter: 2025Q3

REPORT INFORMATION
  Report Type: Spontaneous
  Country: CL (occurrence: CL)
  Receive Date: 20250701
  Receipt Date: 20250828
  Transmission Date: 20251021
  Serious: Yes (Other)
  Sender: SANDOZ
  Company Number: CL-002147023-NVSC2025CL103492

PATIENT
  Age: 66 Year
  Sex: Female

DRUGS (9)
  1. FULVESTRANT [Suspect]
     Active Substance: FULVESTRANT
     Indication: Product used for unknown indication
     Route: 065
  2. KISQALI [Suspect]
     Active Substance: RIBOCICLIB SUCCINATE
     Indication: Breast cancer female
     Dosage: 600 MG, QD
     Route: 048
     Dates: start: 20250515
  3. AMOXICILLIN\CLAVULANIC ACID [Concomitant]
     Active Substance: AMOXICILLIN\CLAVULANIC ACID
     Indication: Product used for unknown indication
     Route: 065
  4. CELECOXIB [Concomitant]
     Active Substance: CELECOXIB
     Indication: Product used for unknown indication
     Route: 065
  5. METRONIDAZOLE [Concomitant]
     Active Substance: METRONIDAZOLE
     Indication: Product used for unknown indication
     Route: 065
  6. MORPHINE [Concomitant]
     Active Substance: MORPHINE
     Indication: Breast cancer female
     Route: 065
  7. MORPHINE [Concomitant]
     Active Substance: MORPHINE
     Indication: Breast cancer female
     Route: 065
  8. PREGABALIN [Concomitant]
     Active Substance: PREGABALIN
     Indication: Breast cancer female
     Route: 065
  9. TRAMADOL [Concomitant]
     Active Substance: TRAMADOL
     Indication: Breast cancer female
     Route: 065

REACTIONS (13)
  - Immunosuppression [Unknown]
  - Swelling face [Recovered/Resolved]
  - Toothache [Unknown]
  - Stress [Unknown]
  - White blood cells urine positive [Unknown]
  - Red blood cells urine positive [Unknown]
  - Urine abnormality [Unknown]
  - Hepatic lesion [Unknown]
  - Condition aggravated [Unknown]
  - Culture urine positive [Unknown]
  - Bacteriuria [Unknown]
  - Tooth infection [Recovered/Resolved]
  - Urinary tract infection [Unknown]

NARRATIVE: CASE EVENT DATE: 20250613
